FAERS Safety Report 4749801-0 (Version None)
Quarter: 2005Q3

REPORT INFORMATION
  Report Type: 
  Country: None (occurrence: None)
  Receive Date: 20050822
  Receipt Date: 20050808
  Transmission Date: 20060218
  Serious: Yes (Hospitalization, Congenital Anomaly)
  Sender: FDA-Public Use
  Company Number: GB-JNJFOC-20050803287

PATIENT
  Sex: Male
  Weight: 3.25 kg

DRUGS (2)
  1. TOPAMAX [Suspect]
     Indication: EPILEPSY
  2. EPILIM [Suspect]
     Indication: EPILEPSY

REACTIONS (1)
  - CRANIOSYNOSTOSIS [None]
